FAERS Safety Report 16940666 (Version 1)
Quarter: 2019Q4

REPORT INFORMATION
  Report Type: Spontaneous
  Country: US (occurrence: US)
  Receive Date: 20191021
  Receipt Date: 20191021
  Transmission Date: 20200122
  Serious: Yes (Death, Hospitalization)
  Sender: FDA-Public Use
  Company Number: US-MYLANLABS-2019M1097800

PATIENT
  Age: 39 Year
  Sex: Female

DRUGS (2)
  1. CYTARABINE. [Suspect]
     Active Substance: CYTARABINE
     Indication: ACUTE MYELOID LEUKAEMIA
     Dosage: UNK
     Route: 065
  2. DAUNORUBICIN [Suspect]
     Active Substance: DAUNORUBICIN
     Indication: ACUTE MYELOID LEUKAEMIA
     Dosage: UNK
     Route: 065

REACTIONS (13)
  - Anal fistula [Unknown]
  - Enterococcal infection [Unknown]
  - Pancytopenia [Unknown]
  - Enterobacter infection [Unknown]
  - Metabolic acidosis [Unknown]
  - Adenovirus infection [Fatal]
  - Staphylococcal infection [Unknown]
  - Herpes simplex viraemia [Unknown]
  - Candida infection [Fatal]
  - Cytomegalovirus viraemia [Unknown]
  - Haemophagocytic lymphohistiocytosis [Unknown]
  - Gingivitis [Unknown]
  - Stomatitis [Recovering/Resolving]
